FAERS Safety Report 5448817-9 (Version None)
Quarter: 2007Q3

REPORT INFORMATION
  Report Type: 
  Country: None (occurrence: None)
  Receive Date: 20070911
  Receipt Date: 20070627
  Transmission Date: 20080115
  Serious: No
  Sender: FDA-Public Use
  Company Number: US-BRISTOL-MYERS SQUIBB COMPANY-13828108

PATIENT
  Sex: Male

DRUGS (4)
  1. EMSAM [Suspect]
     Indication: DEPRESSION
     Route: 062
  2. FLOMAX [Concomitant]
  3. CELEBREX [Concomitant]
  4. LIPITOR [Concomitant]

REACTIONS (1)
  - DRUG INEFFECTIVE [None]
